FAERS Safety Report 5974269-6 (Version None)
Quarter: 2008Q4

REPORT INFORMATION
  Report Type: 
  Country: None (occurrence: None)
  Receive Date: 20081128
  Receipt Date: 20081113
  Transmission Date: 20090506
  Serious: No
  Sender: FDA-Public Use
  Company Number: US025033

PATIENT
  Sex: Female

DRUGS (4)
  1. FENTORA [Suspect]
     Indication: PITUITARY TUMOUR BENIGN
     Dosage: 400 UG TITRATED FROM 200-400MCG QD PRN BUCCAL
     Route: 002
     Dates: start: 20061101, end: 20070501
  2. FENTORA [Suspect]
     Indication: MIGRAINE
     Dosage: 400 UG QD PRN SUBLINGUAL
     Route: 060
     Dates: start: 20070501
  3. FENTORA [Suspect]
     Indication: PITUITARY TUMOUR BENIGN
     Dosage: 400 UG QD PRN SUBLINGUAL
     Route: 060
     Dates: start: 20070501
  4. DURAGESIC-100 [Concomitant]

REACTIONS (4)
  - DRUG ADMINISTRATION ERROR [None]
  - DRUG PRESCRIBING ERROR [None]
  - MEDICATION ERROR [None]
  - PRODUCT QUALITY ISSUE [None]
